FAERS Safety Report 23246261 (Version 1)
Quarter: 2023Q4

REPORT INFORMATION
  Report Type: Spontaneous
  Country: GB (occurrence: GB)
  Receive Date: 20231130
  Receipt Date: 20231130
  Transmission Date: 20240110
  Serious: Yes (Other)
  Sender: FDA-Public Use
  Company Number: None

PATIENT
  Age: 61 Year
  Sex: Female
  Weight: 146.5 kg

DRUGS (5)
  1. CELECOXIB [Suspect]
     Active Substance: CELECOXIB
     Indication: Product used for unknown indication
     Dosage: UNK
     Route: 065
     Dates: start: 20230909
  2. FLUCLOXACILLIN [Concomitant]
     Active Substance: FLUCLOXACILLIN
     Indication: Skin ulcer
     Dosage: UNK
     Route: 065
     Dates: start: 20230920, end: 20231019
  3. CHLORHEXIDINE GLUCONATE [Concomitant]
     Active Substance: CHLORHEXIDINE GLUCONATE
     Indication: Skin ulcer
     Dosage: 500 MILLILITER, WASH AFFECTED AREAS
     Route: 065
     Dates: start: 20230920, end: 20231102
  4. Hydromol [Concomitant]
     Indication: Skin ulcer
     Dosage: 500 GRAM, APPLY TO DRY AREAS OF LEGS
     Route: 065
     Dates: start: 20230920, end: 20231102
  5. POVIDONE-IODINE [Concomitant]
     Active Substance: POVIDONE-IODINE
     Dosage: UNK, AD
     Route: 065
     Dates: start: 20230920, end: 20231102

REACTIONS (1)
  - Vision blurred [Recovered/Resolved]

NARRATIVE: CASE EVENT DATE: 20231017
